FAERS Safety Report 21670953 (Version 2)
Quarter: 2022Q4

REPORT INFORMATION
  Report Type: Spontaneous
  Country: BR (occurrence: BR)
  Receive Date: 20221202
  Receipt Date: 20221221
  Transmission Date: 20230113
  Serious: Yes (Death, Hospitalization, Other)
  Sender: FDA-Public Use
  Company Number: BR-SUN PHARMACEUTICAL INDUSTRIES LTD-2022R1-365681

PATIENT
  Age: 39 Year
  Sex: Male
  Weight: 65 kg

DRUGS (4)
  1. TEMOZOLOMIDE [Suspect]
     Active Substance: TEMOZOLOMIDE
     Indication: Brain neoplasm
     Dosage: 20 MILLIGRAM, QID
     Route: 048
     Dates: start: 20221102, end: 202211
  2. TEMOZOLOMIDE [Suspect]
     Active Substance: TEMOZOLOMIDE
     Dosage: 10 MILLIGRAM, QD
     Route: 048
     Dates: start: 20221102, end: 202211
  3. CARBAMAZEPINE [Concomitant]
     Active Substance: CARBAMAZEPINE
     Indication: Product used for unknown indication
     Dosage: 200 MILLIGRAM, EVERY 12 HOURS
     Route: 065
  4. DEXAMETHASONE [Concomitant]
     Active Substance: DEXAMETHASONE
     Indication: Product used for unknown indication
     Dosage: 4 MILLIGRAM, EVERY 6 HOURS
     Route: 065

REACTIONS (2)
  - Cerebrovascular accident [Fatal]
  - Seizure [Fatal]

NARRATIVE: CASE EVENT DATE: 20221117
